FAERS Safety Report 9772297 (Version 1)
Quarter: 2013Q4

REPORT INFORMATION
  Report Type: Spontaneous
  Country: MX (occurrence: MX)
  Receive Date: 20131219
  Receipt Date: 20131219
  Transmission Date: 20140711
  Serious: Yes (Hospitalization)
  Sender: FDA-Public Use
  Company Number: MX-AMGEN-MEXSP2013089092

PATIENT
  Age: 44 Year
  Sex: Female

DRUGS (5)
  1. NEUPOGEN [Suspect]
     Indication: NEUTROPENIA
     Dosage: 300 MUG, CYCLE 2/ 5 DOSES ADMINISTERED DAYS 8 TO 12
     Route: 065
  2. NEUPOGEN [Suspect]
     Dosage: 300 MUG, CYCLE 2/ 6 DOSES ADMINISTERED DAYS 8 TO 13
     Route: 065
  3. ETOPOSIDE [Suspect]
     Indication: CHEMOTHERAPY
     Dosage: 452 MG, DAY 3 EVERY MONTH
     Route: 065
  4. ETOPOSIDE [Suspect]
     Dosage: 450 MG, DAY 3 EVERY MONTH
     Route: 065
  5. CYTARABINE [Suspect]
     Indication: CHEMOTHERAPY
     Dosage: 3500 MG, DAY 3 EVERY MONTH
     Route: 065

REACTIONS (2)
  - Febrile neutropenia [Unknown]
  - Neutropenia [Unknown]
